FAERS Safety Report 8559502-9 (Version None)
Quarter: 2012Q3

REPORT INFORMATION
  Report Type: 
  Country: None (occurrence: None)
  Receive Date: 20120802
  Receipt Date: 20120724
  Transmission Date: 20120928
  Serious: Yes (Hospitalization)
  Sender: FDA-Public Use
  Company Number: US-JNJFOC-20120712494

PATIENT
  Sex: Female
  Weight: 68.04 kg

DRUGS (3)
  1. PAIN MEDICATION [Suspect]
     Indication: PAIN
     Route: 065
     Dates: start: 20120401, end: 20120101
  2. PANCREASE [Suspect]
     Indication: PANCREATIC INSUFFICIENCY
     Dosage: 16800 UNITS LIPASE/ADJUST AS NEEDED
     Route: 048
     Dates: start: 20120501
  3. PANCREASE [Suspect]
     Dosage: 16800 UNITS LIPASE/ADJUSTED AS NEEDED
     Route: 048
     Dates: start: 20110501, end: 20120401

REACTIONS (7)
  - GASTRIC BYPASS [None]
  - FAECES DISCOLOURED [None]
  - DIARRHOEA [None]
  - ABNORMAL LOSS OF WEIGHT [None]
  - DRUG INEFFECTIVE [None]
  - ABNORMAL FAECES [None]
  - ANXIETY [None]
